FAERS Safety Report 7682354-6 (Version None)
Quarter: 2011Q3

REPORT INFORMATION
  Report Type: 
  Country: None (occurrence: None)
  Receive Date: 20110805
  Receipt Date: 20110726
  Transmission Date: 20111222
  Serious: Yes (Other)
  Sender: FDA-Public Use
  Company Number: 2011SP035486

PATIENT
  Sex: Female

DRUGS (2)
  1. IMPLANON [Suspect]
     Indication: PRODUCT USED FOR UNKNOWN INDICATION
     Dates: start: 20090101
  2. NITROUS OXIDE W/ OXYGEN [Suspect]
     Indication: EPILEPSY

REACTIONS (2)
  - EPILEPSY [None]
  - MENSTRUATION IRREGULAR [None]
